FAERS Safety Report 6340929-0 (Version None)
Quarter: 2009Q4

REPORT INFORMATION
  Report Type: 
  Country: None (occurrence: None)
  Receive Date: 20090904
  Receipt Date: 20090831
  Transmission Date: 20100525
  Serious: Yes (Other)
  Sender: FDA-Public Use
  Company Number: US-JNJCH-2009023603

PATIENT
  Age: 19 Month
  Sex: Male
  Weight: 11.3 kg

DRUGS (1)
  1. CHILDREN'S ZYRTEC ALLERGY [Suspect]
     Indication: HYPERSENSITIVITY
     Dosage: TEXT:HALF A TEASPOONFUL ONCE A DAY
     Route: 048
     Dates: start: 20090824, end: 20090827

REACTIONS (7)
  - AGGRESSION [None]
  - DISORIENTATION [None]
  - FALL [None]
  - HEAD INJURY [None]
  - PSYCHOMOTOR HYPERACTIVITY [None]
  - TREMOR [None]
  - WRONG DRUG ADMINISTERED [None]
